FAERS Safety Report 17043714 (Version 2)
Quarter: 2020Q2

REPORT INFORMATION
  Report Type: Report from Study
  Country: JP (occurrence: JP)
  Receive Date: 20191118
  Receipt Date: 20200515
  Transmission Date: 20200713
  Serious: Yes (Death, Other)
  Sender: FDA-Public Use
  Company Number: JP-009507513-1911JPN001358J

PATIENT
  Age: 54 Year
  Sex: Female
  Weight: 60 kg

DRUGS (8)
  1. PROGRAF [Concomitant]
     Active Substance: TACROLIMUS
     Indication: PROPHYLAXIS
     Dosage: UNK, QD
     Route: 051
     Dates: end: 20190522
  2. ACICLOVIR [Concomitant]
     Active Substance: ACYCLOVIR
     Indication: PROPHYLAXIS
     Dosage: UNK, QD
     Route: 042
     Dates: start: 20190408, end: 20190409
  3. PROGRAF [Concomitant]
     Active Substance: TACROLIMUS
     Indication: PROPHYLAXIS
     Dosage: UNK, BID
     Route: 048
     Dates: start: 20190520, end: 20190622
  4. ACICLOVIR [Concomitant]
     Active Substance: ACYCLOVIR
     Dosage: UNK, TID
     Route: 048
     Dates: start: 20190410
  5. LETERMOVIR [Suspect]
     Active Substance: LETERMOVIR
     Indication: ANTIVIRAL PROPHYLAXIS
     Dosage: 480 MILLIGRAM, QD
     Route: 048
     Dates: start: 20190403, end: 20190407
  6. ACICLOVIR [Concomitant]
     Active Substance: ACYCLOVIR
     Indication: PROPHYLAXIS
     Dosage: UNK, TID
     Route: 048
     Dates: end: 20190407
  7. LETERMOVIR [Suspect]
     Active Substance: LETERMOVIR
     Dosage: 480 MILLIGRAM, QD
     Route: 048
     Dates: start: 20190410, end: 20190705
  8. PREVYMIS [Suspect]
     Active Substance: LETERMOVIR
     Indication: ANTIVIRAL PROPHYLAXIS
     Dosage: 480 MILLIGRAM, QD
     Route: 041
     Dates: start: 20190408, end: 20190409

REACTIONS (4)
  - Adverse event [Unknown]
  - Acute myeloid leukaemia [Fatal]
  - Stomatitis [Unknown]
  - Engraftment syndrome [Recovered/Resolved]

NARRATIVE: CASE EVENT DATE: 201904
